FAERS Safety Report 6029753-6 (Version None)
Quarter: 2009Q1

REPORT INFORMATION
  Report Type: 
  Country: None (occurrence: None)
  Receive Date: 20090107
  Receipt Date: 20081226
  Transmission Date: 20090719
  Serious: Yes (Hospitalization, Other)
  Sender: FDA-Public Use
  Company Number: PHHO2007MX15721

PATIENT
  Sex: Female

DRUGS (1)
  1. DIOVAN [Suspect]
     Indication: HYPERTENSION
     Dosage: 80 MG, QD
     Route: 048
     Dates: start: 20050301, end: 20080701

REACTIONS (8)
  - BILE DUCT STONE [None]
  - BLOOD PRESSURE FLUCTUATION [None]
  - GALLBLADDER DISORDER [None]
  - GALLBLADDER OPERATION [None]
  - NAUSEA [None]
  - SURGERY [None]
  - TINNITUS [None]
  - VERTIGO [None]
